FAERS Safety Report 5674468-7 (Version None)
Quarter: 2008Q1

REPORT INFORMATION
  Report Type: 
  Country: None (occurrence: None)
  Receive Date: 20080317
  Receipt Date: 20080229
  Transmission Date: 20080703
  Serious: Yes (Death, Other)
  Sender: FDA-Public Use
  Company Number: 2008JP001079

PATIENT
  Age: 53 Year
  Sex: Female

DRUGS (3)
  1. PROGRAF [Suspect]
     Indication: BONE MARROW TRANSPLANT
  2. PREDNISOLONE [Concomitant]
  3. MYCOPHENOLATE MOFETIL [Concomitant]

REACTIONS (6)
  - ACUTE RESPIRATORY DISTRESS SYNDROME [None]
  - COMPLICATIONS OF TRANSPLANT SURGERY [None]
  - DYSURIA [None]
  - PAIN [None]
  - PAIN IN EXTREMITY [None]
  - THROMBOTIC MICROANGIOPATHY [None]
